FAERS Safety Report 6164912-3 (Version None)
Quarter: 2009Q2

REPORT INFORMATION
  Report Type: 
  Country: None (occurrence: None)
  Receive Date: 20090423
  Receipt Date: 20090420
  Transmission Date: 20091009
  Serious: Yes (Other)
  Sender: FDA-Public Use
  Company Number: US-BAYER-200911134NA

PATIENT
  Age: 24 Year
  Sex: Female

DRUGS (2)
  1. MIRENA [Suspect]
     Indication: CONTRACEPTION
     Dosage: CONTINUOUS
     Route: 015
     Dates: start: 20070501, end: 20081101
  2. MY MEDICATION NOS [Concomitant]
     Indication: DRUG USE FOR UNKNOWN INDICATION

REACTIONS (11)
  - ABDOMINAL PAIN LOWER [None]
  - AMENORRHOEA [None]
  - BREAST ENLARGEMENT [None]
  - CYSTITIS [None]
  - FOOD CRAVING [None]
  - HYPOMENORRHOEA [None]
  - MALAISE [None]
  - OVARIAN INFECTION [None]
  - PYREXIA [None]
  - SCREAMING [None]
  - WEIGHT INCREASED [None]
